FAERS Safety Report 10734164 (Version 1)
Quarter: 2015Q1

REPORT INFORMATION
  Report Type: Report from Study
  Country: US (occurrence: US)
  Receive Date: 20150123
  Receipt Date: 20150123
  Transmission Date: 20150721
  Serious: Yes (Hospitalization)
  Sender: FDA-Public Use
  Company Number: US-BRISTOL-MYERS SQUIBB COMPANY-BMS-2015-001453

PATIENT
  Age: 69 Year
  Sex: Male
  Weight: 89 kg

DRUGS (12)
  1. LUPRON [Concomitant]
     Active Substance: LEUPROLIDE ACETATE
  2. CLOBETASOL [Concomitant]
     Active Substance: CLOBETASOL
  3. IBUPROFEN. [Concomitant]
     Active Substance: IBUPROFEN
  4. OMEGA 3                            /01333901/ [Concomitant]
  5. ZOFRAN                             /00955301/ [Concomitant]
     Active Substance: ONDANSETRON HYDROCHLORIDE
  6. EUMAT [Concomitant]
  7. IPILIMUMAB [Suspect]
     Active Substance: IPILIMUMAB
     Indication: PRODUCT USED FOR UNKNOWN INDICATION
     Dosage: 3 MG/KG, Q3WK
     Route: 042
     Dates: start: 201410
  8. SUCRALFATE. [Concomitant]
     Active Substance: SUCRALFATE
  9. CALCIUM + VIT D [Concomitant]
     Active Substance: CALCIUM\VITAMIN D
  10. DEPROZAN [Concomitant]
  11. FAMOTIDINE. [Concomitant]
     Active Substance: FAMOTIDINE
  12. CENTRUM SILVER                     /02363801/ [Concomitant]
     Active Substance: VITAMINS

REACTIONS (7)
  - Influenza like illness [Unknown]
  - Fatigue [Unknown]
  - Hypopituitarism [Unknown]
  - Hypertension [Unknown]
  - Decreased appetite [Unknown]
  - Vomiting [Unknown]
  - Diarrhoea [Unknown]

NARRATIVE: CASE EVENT DATE: 20150105
